FAERS Safety Report 8869021 (Version 1)
Quarter: 2012Q4

REPORT INFORMATION
  Report Type: Spontaneous
  Country: DK (occurrence: None)
  Receive Date: 20121022
  Receipt Date: 20121022
  Transmission Date: 20130627
  Serious: Yes (Hospitalization)
  Sender: FDA-Public Use
  Company Number: 2012MA012406

PATIENT
  Age: 31 Year
  Sex: Male

DRUGS (3)
  1. DIAZEPAM [Suspect]
     Indication: ANXIETY
     Dosage: 30 GTT; QD ; UNK
     Dates: start: 20120701, end: 20120820
  2. TAVOR (LORAZEPAM) [Suspect]
     Indication: INSOMNIA
     Dosage: 1 MG; QD; PO
     Route: 048
     Dates: start: 20120701, end: 20120820
  3. ALCOVIR [Concomitant]

REACTIONS (2)
  - Rhabdomyolysis [None]
  - Drug abuse [None]
